FAERS Safety Report 8819973 (Version 1)
Quarter: 2012Q4

REPORT INFORMATION
  Report Type: 
  Country: PH (occurrence: PH)
  Receive Date: 20121002
  Receipt Date: 20121002
  Transmission Date: 20130627
  Serious: Yes (Death)
  Sender: FDA-Public Use
  Company Number: PH-BAYER-2012-101841

PATIENT
  Age: 36 Year
  Sex: Male

DRUGS (1)
  1. ULTRAVIST [Suspect]
     Indication: COMPUTERISED TOMOGRAM
     Dosage: 50 ml, ONCE
     Route: 042
     Dates: start: 20120921, end: 20120921

REACTIONS (2)
  - Pulmonary embolism [Fatal]
  - Contrast media allergy [Fatal]
